FAERS Safety Report 7900225-4 (Version None)
Quarter: 2011Q4

REPORT INFORMATION
  Report Type: 
  Country: None (occurrence: None)
  Receive Date: 20111108
  Receipt Date: 20111028
  Transmission Date: 20120403
  Serious: Yes (Life-Threatening, Hospitalization)
  Sender: FDA-Public Use
  Company Number: GB-RANBAXY-2011R1-50014

PATIENT

DRUGS (6)
  1. FENTANYL [Interacting]
     Dosage: 50UG,1/1 HOURS
     Route: 062
  2. GABAPENTIN [Interacting]
     Dosage: 900 MG, TID
     Route: 048
  3. GABAPENTIN [Suspect]
     Indication: PAIN
     Dosage: 300 MG,UNK
     Route: 048
     Dates: start: 20110104, end: 20110601
  4. FENTANYL [Interacting]
     Indication: PAIN IN EXTREMITY
     Dosage: 12.5 UG,1/1 HOURS
     Route: 062
     Dates: start: 20110615
  5. GABAPENTIN [Interacting]
     Dosage: 600 MG,UNK
     Route: 048
     Dates: start: 20110601
  6. GLICLAZIDE [Concomitant]
     Indication: PRODUCT USED FOR UNKNOWN INDICATION
     Dosage: UNK,UNK
     Route: 065

REACTIONS (4)
  - HYPOVENTILATION [None]
  - DRUG INTERACTION [None]
  - RESPIRATORY ARREST [None]
  - SOMNOLENCE [None]
